FAERS Safety Report 4647727-4 (Version None)
Quarter: 2005Q2

REPORT INFORMATION
  Report Type: 
  Country: None (occurrence: None)
  Receive Date: 20050426
  Receipt Date: 20050415
  Transmission Date: 20051028
  Serious: Yes (Hospitalization)
  Sender: FDA-Public Use
  Company Number: 05P-056-0297735-00

PATIENT
  Age: 41 Year
  Sex: Female

DRUGS (10)
  1. KALETRA [Suspect]
     Dosage: PER ORAL
     Route: 048
     Dates: end: 20050314
  2. PYRIMETHAMINE [Suspect]
     Dosage: PER ORAL
     Route: 048
     Dates: end: 20050314
  3. CLINDAMYCIN [Suspect]
     Dates: end: 20050314
  4. LAMIVUDINE + ZIDOVUDINE [Suspect]
  5. CALCIUM FOLINATE [Concomitant]
  6. PENTAMIDINE DILSETHONIATE [Concomitant]
  7. CEFTRIAZONE [Concomitant]
  8. AZITHROMYCIN [Concomitant]
  9. OFLOXACIN [Concomitant]
  10. NSAID [Concomitant]

REACTIONS (2)
  - NEUTROPENIA [None]
  - PANCYTOPENIA [None]
